FAERS Safety Report 25244146 (Version 1)
Quarter: 2025Q2

REPORT INFORMATION
  Report Type: Spontaneous
  Country: SK (occurrence: SK)
  Receive Date: 20250428
  Receipt Date: 20250428
  Transmission Date: 20250717
  Serious: Yes (Other)
  Sender: AMGEN
  Company Number: SK-ABBVIE-6234168

PATIENT
  Age: 44 Year
  Sex: Female

DRUGS (2)
  1. ADALIMUMAB [Suspect]
     Active Substance: ADALIMUMAB
     Indication: Juvenile idiopathic arthritis
     Route: 058
     Dates: start: 2019, end: 2022
  2. METHOTREXATE [Concomitant]
     Active Substance: METHOTREXATE
     Indication: Product used for unknown indication
     Route: 065
     Dates: start: 202402

REACTIONS (3)
  - Tongue dysplasia [Unknown]
  - Tongue neoplasm malignant stage unspecified [Unknown]
  - Post procedural inflammation [Unknown]

NARRATIVE: CASE EVENT DATE: 20210101
